FAERS Safety Report 24766308 (Version 4)
Quarter: 2025Q1

REPORT INFORMATION
  Report Type: Spontaneous
  Country: US (occurrence: US)
  Receive Date: 20241223
  Receipt Date: 20250221
  Transmission Date: 20250409
  Serious: Yes (Hospitalization, Other)
  Sender: PFIZER
  Company Number: US-PFIZER INC-PV202400093213

PATIENT
  Age: 69 Year
  Sex: Male

DRUGS (2)
  1. TUKYSA [Suspect]
     Active Substance: TUCATINIB
     Indication: Rectosigmoid cancer
  2. TUKYSA [Suspect]
     Active Substance: TUCATINIB
     Dosage: 300MGS ORALLY 2X A DAY/TWO 150MG TABLETS, EVERY 12 HOURS
     Route: 048
     Dates: start: 202404

REACTIONS (3)
  - Hepatic haemorrhage [Unknown]
  - Blood pressure decreased [Unknown]
  - Off label use [Unknown]
